FAERS Safety Report 8176862-1 (Version None)
Quarter: 2012Q1

REPORT INFORMATION
  Report Type: 
  Country: None (occurrence: None)
  Receive Date: 20120301
  Receipt Date: 20120222
  Transmission Date: 20120608
  Serious: Yes (Other)
  Sender: FDA-Public Use
  Company Number: US-SANOFI-AVENTIS-2012SA012141

PATIENT
  Sex: Male
  Weight: 84 kg

DRUGS (6)
  1. INSULIN [Concomitant]
  2. ALL OTHER THERAPEUTIC PRODUCTS [Concomitant]
  3. PLAVIX [Suspect]
     Route: 048
     Dates: start: 19990501
  4. PLAVIX [Suspect]
     Route: 048
     Dates: start: 19990501
  5. ORAL ANTIDIABETICS [Concomitant]
  6. LOVASTATIN [Concomitant]

REACTIONS (13)
  - TREMOR [None]
  - CARDIAC DISORDER [None]
  - VASCULAR OCCLUSION [None]
  - APHONIA [None]
  - VISION BLURRED [None]
  - MOBILITY DECREASED [None]
  - FALL [None]
  - HYPOACUSIS [None]
  - MALAISE [None]
  - ARRHYTHMIA [None]
  - CATARACT [None]
  - SURGERY [None]
  - ABASIA [None]
